FAERS Safety Report 20564356 (Version 1)
Quarter: 2022Q1

REPORT INFORMATION
  Report Type: Report from Study
  Country: AU (occurrence: AU)
  Receive Date: 20220308
  Receipt Date: 20220308
  Transmission Date: 20220424
  Serious: Yes (Other)
  Sender: FDA-Public Use
  Company Number: AU-JNJFOC-20220154637

PATIENT
  Age: 30 Year
  Sex: Female

DRUGS (7)
  1. SPRAVATO [Suspect]
     Active Substance: ESKETAMINE
     Indication: Product used for unknown indication
     Dosage: FIRST DOSE OF SPRAVATO
     Dates: start: 20220125
  2. SPRAVATO [Suspect]
     Active Substance: ESKETAMINE
     Dosage: SECOND DOSE OF SPRAVATO
     Dates: start: 20220127
  3. SPRAVATO [Suspect]
     Active Substance: ESKETAMINE
     Dosage: THIRD DOSE OF SPRAVATO
     Dates: start: 20220202
  4. SPRAVATO [Suspect]
     Active Substance: ESKETAMINE
     Dosage: FOURTH DOSE OF SPRAVATO
     Dates: start: 20220208
  5. SPRAVATO [Suspect]
     Active Substance: ESKETAMINE
     Dosage: SPRAVATO 5TH AND 6TH DOSE
     Dates: start: 202202
  6. LEXAPRO [Concomitant]
     Active Substance: ESCITALOPRAM OXALATE
     Indication: Antidepressant therapy
     Route: 065
  7. AGOMELATINE [Concomitant]
     Active Substance: AGOMELATINE
     Indication: Antidepressant therapy
     Route: 065

REACTIONS (15)
  - Suicidal ideation [Unknown]
  - Somnolence [Unknown]
  - Dissociative disorder [Recovered/Resolved]
  - Paraesthesia oral [Unknown]
  - Insomnia [Recovered/Resolved]
  - Feeling cold [Recovered/Resolved]
  - Hypotension [Recovered/Resolved]
  - Hypoaesthesia [Recovered/Resolved]
  - Headache [Recovered/Resolved]
  - Tearfulness [Unknown]
  - Feeling abnormal [Unknown]
  - Dissociation [Unknown]
  - Fatigue [Unknown]
  - Depression [Unknown]
  - Somnolence [Unknown]

NARRATIVE: CASE EVENT DATE: 20220125
